FAERS Safety Report 20340974 (Version 1)
Quarter: 2022Q1

REPORT INFORMATION
  Report Type: Spontaneous
  Country: GB (occurrence: GB)
  Receive Date: 20220117
  Receipt Date: 20220117
  Transmission Date: 20220423
  Serious: Yes (Other)
  Sender: FDA-Public Use
  Company Number: GB-GW PHARMA-202111GBGW05659

PATIENT

DRUGS (6)
  1. CANNABIDIOL [Suspect]
     Active Substance: CANNABIDIOL
     Indication: Severe myoclonic epilepsy of infancy
     Dosage: 2 MILLIGRAM/KILOGRAM, QD
     Route: 048
     Dates: start: 2021, end: 2021
  2. CANNABIDIOL [Suspect]
     Active Substance: CANNABIDIOL
     Dosage: 10 MILLIGRAM/KILOGRAM, QD
     Route: 048
     Dates: start: 2021, end: 2021
  3. CANNABIDIOL [Suspect]
     Active Substance: CANNABIDIOL
     Dosage: 6 MILLIGRAM/KILOGRAM, QD
     Route: 048
     Dates: start: 2021, end: 2021
  4. CANNABIDIOL [Suspect]
     Active Substance: CANNABIDIOL
     Dosage: 10 MILLIGRAM/KILOGRAM, QD
     Route: 048
     Dates: start: 2021
  5. STIRIPENTOL [Concomitant]
     Active Substance: STIRIPENTOL
     Indication: Seizure
     Dosage: UNK
     Route: 065
  6. CLOBAZAM [Concomitant]
     Active Substance: CLOBAZAM
     Indication: Seizure
     Dosage: UNK (SLOW TITRATION OF CLB TARGET 10 G/KG/DAY)
     Route: 065

REACTIONS (4)
  - Intentional self-injury [Recovering/Resolving]
  - Behaviour disorder [Recovering/Resolving]
  - Seizure [Recovering/Resolving]
  - Aggression [Recovering/Resolving]
